FAERS Safety Report 14206166 (Version 1)
Quarter: 2017Q4

REPORT INFORMATION
  Report Type: Spontaneous
  Country: US (occurrence: US)
  Receive Date: 20171120
  Receipt Date: 20171120
  Transmission Date: 20180321
  Serious: Yes (Death, Other)
  Sender: FDA-Public Use
  Company Number: US-CELGENEUS-USA-2015116102

PATIENT

DRUGS (8)
  1. SONIDEGIB [Suspect]
     Active Substance: SONIDEGIB
     Indication: MYELODYSPLASTIC SYNDROME
  2. SONIDEGIB [Suspect]
     Active Substance: SONIDEGIB
     Indication: MYELOPROLIFERATIVE NEOPLASM
  3. VIDAZA [Suspect]
     Active Substance: AZACITIDINE
     Indication: CHRONIC MYELOMONOCYTIC LEUKAEMIA
  4. VIDAZA [Suspect]
     Active Substance: AZACITIDINE
     Indication: MYELODYSPLASTIC SYNDROME
  5. SONIDEGIB [Suspect]
     Active Substance: SONIDEGIB
     Indication: ACUTE MYELOID LEUKAEMIA
     Dosage: 200 MILLIGRAM
     Route: 048
  6. SONIDEGIB [Suspect]
     Active Substance: SONIDEGIB
     Indication: CHRONIC MYELOMONOCYTIC LEUKAEMIA
     Dosage: 400 MILLIGRAM
     Route: 048
  7. VIDAZA [Suspect]
     Active Substance: AZACITIDINE
     Indication: MYELOPROLIFERATIVE NEOPLASM
  8. VIDAZA [Suspect]
     Active Substance: AZACITIDINE
     Indication: ACUTE MYELOID LEUKAEMIA
     Dosage: 75 MILLIGRAM/SQ. METER
     Route: 041

REACTIONS (19)
  - Insomnia [Unknown]
  - Blood creatine phosphokinase increased [Unknown]
  - Neutropenia [Unknown]
  - Thrombocytopenia [Unknown]
  - Constipation [Unknown]
  - Hyponatraemia [Unknown]
  - Neoplasm [Fatal]
  - Diarrhoea [Unknown]
  - Death [Fatal]
  - Multiple organ dysfunction syndrome [Fatal]
  - Anaemia [Unknown]
  - Nausea [Unknown]
  - Cough [Unknown]
  - Sudden death [Fatal]
  - Cardiac arrest [Fatal]
  - Abdominal pain [Unknown]
  - Fatigue [Unknown]
  - Disease progression [Unknown]
  - Leukopenia [Unknown]
